FAERS Safety Report 20232500 (Version 1)
Quarter: 2021Q4

REPORT INFORMATION
  Report Type: Spontaneous
  Country: AT (occurrence: None)
  Receive Date: 20211227
  Receipt Date: 20211227
  Transmission Date: 20220303
  Serious: Yes (Other)
  Sender: FDA-Public Use
  Company Number: AT-Fresenius Kabi-FK202114347

PATIENT
  Age: 46 Year

DRUGS (1)
  1. PROPOFOL [Suspect]
     Active Substance: PROPOFOL
     Indication: Maintenance of anaesthesia
     Dosage: 10-12 ML
     Route: 042
     Dates: start: 20210705

REACTIONS (3)
  - Bispectral index decreased [Recovered/Resolved]
  - Incorrect dose administered [Recovered/Resolved]
  - Device dispensing error [Recovered/Resolved]

NARRATIVE: CASE EVENT DATE: 20210705
